FAERS Safety Report 19072347 (Version 1)
Quarter: 2021Q1

REPORT INFORMATION
  Report Type: Spontaneous
  Country: US (occurrence: US)
  Receive Date: 20210329
  Receipt Date: 20210329
  Transmission Date: 20210420
  Serious: No
  Sender: FDA-Public Use
  Company Number: None

PATIENT
  Age: 65 Year
  Sex: Female
  Weight: 90 kg

DRUGS (12)
  1. HYDROXYZINE [Concomitant]
     Active Substance: HYDROXYZINE HYDROCHLORIDE
  2. LEVO?THYROXINE [Concomitant]
     Active Substance: LEVOTHYROXINE
  3. CETRIZINE [Concomitant]
     Active Substance: CETIRIZINE HYDROCHLORIDE
  4. LOSARTAN. [Concomitant]
     Active Substance: LOSARTAN
  5. SINGULAIR [Concomitant]
     Active Substance: MONTELUKAST SODIUM
  6. OMEGA 3 [Concomitant]
     Active Substance: OMEGA-3 FATTY ACIDS
  7. ALOE VERA [Concomitant]
     Active Substance: ALOE VERA LEAF
  8. ALENDRONATE (COMMONLY KNOWN AS FOSAMAX) [Suspect]
     Active Substance: ALENDRONATE SODIUM
     Indication: OSTEOPOROSIS
     Dosage: ?          QUANTITY:1 CAPSULE(S);OTHER FREQUENCY:ONCE A WEEK;?
     Route: 048
     Dates: start: 20210327, end: 20210327
  9. FUROSEMIDE. [Concomitant]
     Active Substance: FUROSEMIDE
  10. HYDROXYCHLOROQUINE [Concomitant]
     Active Substance: HYDROXYCHLOROQUINE
  11. ROUVASTATIN [Concomitant]
     Active Substance: ROSUVASTATIN
  12. VITAMIN D [Concomitant]
     Active Substance: VITAMIN D NOS

REACTIONS (5)
  - Myalgia [None]
  - Headache [None]
  - Bone pain [None]
  - Diarrhoea [None]
  - Nausea [None]

NARRATIVE: CASE EVENT DATE: 20210327
